FAERS Safety Report 13921753 (Version 1)
Quarter: 2017Q3

REPORT INFORMATION
  Report Type: Report from Study
  Country: NL (occurrence: NL)
  Receive Date: 20170830
  Receipt Date: 20170830
  Transmission Date: 20171127
  Serious: Yes (Other)
  Sender: FDA-Public Use
  Company Number: NL-CELGENEUS-NLD-20170803036

PATIENT
  Age: 37 Year
  Sex: Female
  Weight: 111.5 kg

DRUGS (17)
  1. DAUNORUBICIN [Suspect]
     Active Substance: DAUNORUBICIN
     Indication: ACUTE MYELOID LEUKAEMIA
     Route: 041
     Dates: start: 20170727, end: 20170729
  2. MOVICOLON [Concomitant]
     Active Substance: POLYETHYLENE GLYCOL 3350\POTASSIUM CHLORIDE\SODIUM BICARBONATE\SODIUM CHLORIDE
     Indication: CONSTIPATION
     Route: 048
     Dates: start: 20170721
  3. CYTARABINE. [Suspect]
     Active Substance: CYTARABINE
     Indication: ACUTE MYELOID LEUKAEMIA
     Route: 041
     Dates: start: 20170727, end: 20170802
  4. AMFOTERICINE B [Concomitant]
     Indication: ANTIFUNGAL PROPHYLAXIS
     Route: 001
     Dates: start: 20170728
  5. METOCLOPRAMIDE. [Concomitant]
     Active Substance: METOCLOPRAMIDE
     Indication: NAUSEA
     Route: 048
     Dates: start: 20170627
  6. OXYCODON [Concomitant]
     Active Substance: OXYCODONE
     Indication: SINUSITIS
     Route: 048
     Dates: start: 20170721
  7. ETHINYLESTRADIOL/LEVONORGESTREL [Concomitant]
     Active Substance: ETHINYL ESTRADIOL\LEVONORGESTREL
     Indication: PROPHYLAXIS
     Route: 048
     Dates: start: 20170620
  8. DESLORATADINE. [Concomitant]
     Active Substance: DESLORATADINE
     Indication: SEASONAL ALLERGY
     Route: 048
     Dates: start: 20170719
  9. AG-221 [Suspect]
     Active Substance: ENASIDENIB
     Indication: ACUTE MYELOID LEUKAEMIA
     Route: 048
  10. BENZYLPENICILLINE [Concomitant]
     Active Substance: PENICILLIN G
     Indication: ANTICOAGULANT THERAPY
     Route: 041
     Dates: start: 20170801
  11. NADROPARINE [Concomitant]
     Active Substance: NADROPARIN
     Indication: ANTICOAGULANT THERAPY
     Route: 058
     Dates: start: 20170801
  12. BECLOMETASON/FORMOTEROL AEROSOL [Concomitant]
     Indication: DYSPNOEA
     Route: 055
     Dates: start: 20170719
  13. FLUCONAZOL [Concomitant]
     Active Substance: FLUCONAZOLE
     Indication: ANTIFUNGAL PROPHYLAXIS
     Route: 048
     Dates: start: 20170727
  14. HEPARIN [Concomitant]
     Active Substance: HEPARIN SODIUM
     Indication: PROPHYLAXIS
     Route: 041
     Dates: start: 20170727
  15. CIPROFLOXACINE [Concomitant]
     Active Substance: CIPROFLOXACIN
     Indication: PROPHYLAXIS
     Route: 048
     Dates: start: 20170727
  16. NATRIUMFLUORIDE GEL DENTAAL [Concomitant]
     Indication: PROPHYLAXIS
     Route: 048
     Dates: start: 20170727
  17. SALBUTAMOL [Concomitant]
     Active Substance: ALBUTEROL
     Indication: DYSPNOEA
     Route: 055
     Dates: start: 20170719

REACTIONS (1)
  - Mucosal inflammation [Recovering/Resolving]

NARRATIVE: CASE EVENT DATE: 20170805
